FAERS Safety Report 5211938-X (Version None)
Quarter: 2007Q1

REPORT INFORMATION
  Report Type: 
  Country: None (occurrence: None)
  Receive Date: 20061107
  Receipt Date: 20061107
  Transmission Date: 20070707
  Serious: Yes (Other)
  Sender: FDA-Public Use
  Company Number: 05C413

PATIENT
  Sex: Female

DRUGS (1)
  1. PURALUBE TEARS [Suspect]

REACTIONS (1)
  - BURNING SENSATION [None]
